FAERS Safety Report 7457397-8 (Version None)
Quarter: 2011Q1

REPORT INFORMATION
  Report Type: 
  Country: None (occurrence: None)
  Receive Date: 20110302
  Receipt Date: 20100803
  Transmission Date: 20110831
  Serious: Yes (Other)
  Sender: FDA-Public Use
  Company Number: 163-21880-06121097

PATIENT
  Age: 55 Year
  Sex: Male

DRUGS (3)
  1. LISINOPRIL [Concomitant]
  2. REVLIMID [Suspect]
     Indication: MULTIPLE MYELOMA
     Dosage: 25 MG, QD FOR 21 DAYS, PO, 5 MG, 1 IN 1 D, PO
     Route: 048
     Dates: start: 20070228
  3. REVLIMID [Suspect]
     Indication: MULTIPLE MYELOMA
     Dosage: 25 MG, QD FOR 21 DAYS, PO, 5 MG, 1 IN 1 D, PO
     Route: 048
     Dates: start: 20061222

REACTIONS (7)
  - URTICARIA [None]
  - SWELLING [None]
  - RASH ERYTHEMATOUS [None]
  - HYPERSENSITIVITY [None]
  - PERIORBITAL OEDEMA [None]
  - PRURITUS [None]
  - ABDOMINAL DISTENSION [None]
